FAERS Safety Report 4309390-1 (Version None)
Quarter: 2004Q1

REPORT INFORMATION
  Report Type: 
  Country: None (occurrence: None)
  Receive Date: 20040302
  Receipt Date: 20040227
  Transmission Date: 20041129
  Serious: Yes (Other)
  Sender: FDA-Public Use
  Company Number: DE-ROCHE-360096

PATIENT
  Sex: Male

DRUGS (2)
  1. ISOTRETINOIN [Suspect]
     Indication: DRUG USE FOR UNKNOWN INDICATION
     Route: 048
     Dates: start: 20021215, end: 20030815
  2. ISOTRETINOIN [Suspect]
     Route: 048
     Dates: start: 20031115

REACTIONS (2)
  - MYOSITIS [None]
  - SJOGREN'S SYNDROME [None]
